FAERS Safety Report 9582173 (Version 1)
Quarter: 2013Q4

REPORT INFORMATION
  Report Type: Report from Study
  Country: FR (occurrence: FR)
  Receive Date: 20131002
  Receipt Date: 20131002
  Transmission Date: 20140711
  Serious: Yes (Other)
  Sender: FDA-Public Use
  Company Number: FR-GILEAD-2013-0084241

PATIENT
  Sex: 0

DRUGS (3)
  1. EMTRICITABINE [Suspect]
     Indication: HIV INFECTION
  2. TENOFOVIR DISOPROXIL FUMARATE [Suspect]
     Indication: HIV INFECTION
  3. DARUNAVIR (+) RITONAVIR [Suspect]
     Indication: HIV INFECTION

REACTIONS (2)
  - Genotype drug resistance test positive [Unknown]
  - Virologic failure [Unknown]
